FAERS Safety Report 6774064-4 (Version None)
Quarter: 2010Q2

REPORT INFORMATION
  Report Type: 
  Country: None (occurrence: None)
  Receive Date: 20100616
  Receipt Date: 20100616
  Transmission Date: 20101027
  Serious: No
  Sender: FDA-Public Use
  Company Number: None

PATIENT
  Age: 49 Year
  Sex: Female
  Weight: 66.2252 kg

DRUGS (1)
  1. TELMISARTAN (MICARDIS) [Suspect]
     Indication: HYPERTENSION
     Dosage: 20 MG DAILY PO
     Route: 048
     Dates: start: 20080516, end: 20100614

REACTIONS (1)
  - BREAST CANCER [None]
